FAERS Safety Report 5973188-9 (Version None)
Quarter: 2008Q4

REPORT INFORMATION
  Report Type: 
  Country: None (occurrence: None)
  Receive Date: 20081201
  Receipt Date: 20081120
  Transmission Date: 20090506
  Serious: Yes (Hospitalization)
  Sender: FDA-Public Use
  Company Number: JP-ELI_LILLY_AND_COMPANY-JP200810006368

PATIENT
  Sex: Male

DRUGS (9)
  1. GEMZAR [Suspect]
     Indication: PANCREATIC CARCINOMA STAGE IV
     Dosage: 1600 MG/M2, OTHER
     Route: 042
     Dates: start: 20080827
  2. ADALAT [Concomitant]
     Dosage: 20 MG, DAILY (1/D)
     Route: 048
  3. MICARDIS [Concomitant]
     Dosage: 20 MG, DAILY (1/D)
     Route: 048
  4. WYSTAL [Concomitant]
     Dosage: UNK, UNKNOWN
     Route: 042
  5. FAMOTIDINE [Concomitant]
     Dosage: UNK, UNKNOWN
     Route: 065
  6. REMINARON [Concomitant]
     Dosage: UNK, UNKNOWN
     Route: 042
  7. ZYLORIC [Concomitant]
     Dosage: 100 MG, UNKNOWN
     Route: 048
  8. URALYT-U [Concomitant]
     Dosage: 4 G, UNK
     Route: 048
  9. APLACE [Concomitant]
     Dosage: 200 MG, UNKNOWN
     Route: 048

REACTIONS (5)
  - COMPUTERISED TOMOGRAM ABNORMAL [None]
  - DYSPNOEA EXERTIONAL [None]
  - INTERSTITIAL LUNG DISEASE [None]
  - LYMPHOCYTE STIMULATION TEST POSITIVE [None]
  - OXYGEN SATURATION DECREASED [None]
